FAERS Safety Report 5959380 (Version 2)
Quarter: 2013Q2

REPORT INFORMATION
  Report Type: Spontaneous
  Country: IT (occurrence: None)
  Receive Date: 20051230
  Receipt Date: 20130425
  Transmission Date: 20140414
  Serious: Yes (Congenital Anomaly, Other)
  Sender: FDA-Public Use
  Company Number: 2005US-01362

PATIENT
  Sex: Male

DRUGS (3)
  1. ZIDOVUDINE [Suspect]
     Indication: PROPHYLAXIS AGAINST HIV INFECTION
     Route: 064
  2. ZIDOVUDINE (ZIDOVUDINE) [Suspect]
     Indication: HIV INFECTION
     Route: 064
  3. ZIDOVUDINE (ZIDOVUDINE) [Suspect]
     Indication: PRODUCT USED FOR UNKNOWN INDICATION
     Route: 048

REACTIONS (16)
  - PSYCHOMOTOR SKILLS IMPAIRED [None]
  - MATERNAL EXPOSURE DURING PREGNANCY [None]
  - CAESAREAN SECTION [None]
  - ANAEMIA NEONATAL [None]
  - BIOPSY MUSCLE ABNORMAL [None]
  - LIPIDS INCREASED [None]
  - VISUAL IMPAIRMENT [None]
  - MITOCHONDRIAL DNA DELETION [None]
  - HYPOTONIA NEONATAL [None]
  - TACHYPNOEA [None]
  - EYE MOVEMENT DISORDER [None]
  - Apnoea neonatal [None]
  - HYPERLACTACIDAEMIA [None]
  - ERYTHROPOIESIS ABNORMAL [None]
  - CONGENITAL CENTRAL NERVOUS SYSTEM ANOMALY [None]
  - NEURODEGENERATIVE DISORDER [None]
